FAERS Safety Report 16935022 (Version 1)
Quarter: 2019Q4

REPORT INFORMATION
  Report Type: Spontaneous
  Country: CN (occurrence: CN)
  Receive Date: 20191018
  Receipt Date: 20191018
  Transmission Date: 20200122
  Serious: Yes (Life-Threatening)
  Sender: FDA-Public Use
  Company Number: CN-ROCHE-2434410

PATIENT
  Sex: Male

DRUGS (2)
  1. ACTILYSE [Suspect]
     Active Substance: ALTEPLASE
     Indication: THROMBOLYSIS
     Dosage: AT 11.41 HOURS
     Route: 042
     Dates: start: 20190517, end: 20190517
  2. ACTILYSE [Suspect]
     Active Substance: ALTEPLASE
     Dosage: AT 12.43 HOURS
     Route: 042
     Dates: start: 20190517, end: 20190517

REACTIONS (3)
  - Dyspnoea [Recovering/Resolving]
  - Hypoaesthesia oral [Recovering/Resolving]
  - Dry mouth [Recovering/Resolving]

NARRATIVE: CASE EVENT DATE: 20190517
